FAERS Safety Report 7273497-X (Version None)
Quarter: 2011Q1

REPORT INFORMATION
  Report Type: 
  Country: None (occurrence: None)
  Receive Date: 20110203
  Receipt Date: 20110127
  Transmission Date: 20110831
  Serious: Yes (Other)
  Sender: FDA-Public Use
  Company Number: US-JNJFOC-20110107928

PATIENT
  Age: 5 Year
  Sex: Female
  Weight: 21.77 kg

DRUGS (4)
  1. CHILDREN'S MOTRIN [Suspect]
     Route: 048
  2. CHILDREN'S MOTRIN [Suspect]
     Indication: PYREXIA
     Route: 048
  3. FLOVENT [Concomitant]
     Indication: ASTHMA
     Dosage: 1 PUFF
     Route: 065
  4. VITAMIN TAB [Concomitant]
     Route: 065

REACTIONS (2)
  - HALLUCINATION [None]
  - PRODUCT CONTAMINATION PHYSICAL [None]
